FAERS Safety Report 10348792 (Version 1)
Quarter: 2014Q3

REPORT INFORMATION
  Report Type: Spontaneous
  Country: GB (occurrence: None)
  Receive Date: 20140725
  Receipt Date: 20140725
  Transmission Date: 20150326
  Serious: Yes (Other)
  Sender: FDA-Public Use
  Company Number: AUR-APL-2014-07900

PATIENT
  Age: 51 Year
  Sex: Male
  Weight: 85.7 kg

DRUGS (6)
  1. AMOXICILLIN (AMOXICILLIN) UNKNOWN [Suspect]
     Active Substance: AMOXICILLIN
     Indication: LOWER RESPIRATORY TRACT INFECTION
  2. PARACETAMOL (PARACETAMOL) [Concomitant]
     Active Substance: ACETAMINOPHEN
  3. ORAMORPH (MORPHINE SULFATE PENTAHYDRATE) [Concomitant]
  4. MXL (MORPHINE SULFATE) [Suspect]
     Active Substance: MORPHINE SULFATE
     Indication: PAIN
     Route: 048
     Dates: start: 200707
  5. CLOPIDOGRE (CLOPIDOGREL) [Concomitant]
  6. SALBUTAMOL (SALBUTAMOL) [Concomitant]
     Active Substance: ALBUTEROL

REACTIONS (4)
  - Muscle twitching [None]
  - Sleep disorder [None]
  - Neuralgia [None]
  - Inhibitory drug interaction [None]

NARRATIVE: CASE EVENT DATE: 20140618
